FAERS Safety Report 4899100-1 (Version None)
Quarter: 2006Q1

REPORT INFORMATION
  Report Type: 
  Country: None (occurrence: None)
  Receive Date: 20060202
  Receipt Date: 20060123
  Transmission Date: 20060701
  Serious: Yes (Death, Life-Threatening, Hospitalization)
  Sender: FDA-Public Use
  Company Number: SK-BRISTOL-MYERS SQUIBB COMPANY-13259072

PATIENT
  Age: 25 Year
  Sex: Male

DRUGS (3)
  1. ABILIFY [Suspect]
     Indication: SCHIZOPHRENIA
     Dosage: DOSAGE: INITIATED AT 7.5 MG DAILY FROM 13-NOV-2005 TO 12-DEC-2005; 15 MG DAILY FROM 13-DEC-2005
     Route: 048
     Dates: start: 20051113
  2. DEFOBIN [Concomitant]
  3. COAXIL [Concomitant]

REACTIONS (4)
  - ADRENAL CARCINOMA [None]
  - BRAIN OEDEMA [None]
  - BRONCHOPNEUMONIA [None]
  - GASTRITIS [None]
